FAERS Safety Report 25284784 (Version 1)
Quarter: 2025Q2

REPORT INFORMATION
  Report Type: Report from Study
  Country: FR (occurrence: FR)
  Receive Date: 20250508
  Receipt Date: 20250508
  Transmission Date: 20250716
  Serious: Yes (Death, Other)
  Sender: SANOFI AVENTIS
  Company Number: FR-DialogSolutions-SAAVPROD-PI766202-C1

PATIENT

DRUGS (4)
  1. OXALIPLATIN [Suspect]
     Active Substance: OXALIPLATIN
     Dosage: 85 MG/M2, QOW
     Route: 042
  2. DOCETAXEL [Suspect]
     Active Substance: DOCETAXEL
     Dosage: 50 MG/M2, QOW
     Route: 042
  3. LEUCOVORIN [Suspect]
     Active Substance: LEUCOVORIN\LEUCOVORIN CALCIUM
     Dosage: 400 MG/M2, QOW
     Route: 042
  4. FLUOROURACIL [Suspect]
     Active Substance: FLUOROURACIL
     Route: 041

REACTIONS (1)
  - Septic shock [Fatal]
